FAERS Safety Report 24078392 (Version 1)
Quarter: 2024Q3

REPORT INFORMATION
  Report Type: Spontaneous
  Country: GR (occurrence: GR)
  Receive Date: 20240711
  Receipt Date: 20240711
  Transmission Date: 20241016
  Serious: Yes (Other)
  Sender: ACCORD
  Company Number: GR-Accord-434058

PATIENT
  Age: 40 Year
  Sex: Male

DRUGS (1)
  1. FLUOROURACIL [Suspect]
     Active Substance: FLUOROURACIL
     Indication: Trabeculectomy
     Dosage: 0.4 ML OF 50 MG/ML

REACTIONS (3)
  - Anterior chamber inflammation [Recovering/Resolving]
  - Subretinal fluid [Recovered/Resolved]
  - Corneal toxicity [Recovering/Resolving]
